FAERS Safety Report 12790491 (Version 2)
Quarter: 2016Q4

REPORT INFORMATION
  Report Type: Report from Study
  Country: CA (occurrence: CA)
  Receive Date: 20160929
  Receipt Date: 20161103
  Transmission Date: 20170207
  Serious: Yes (Life-Threatening, Hospitalization)
  Sender: FDA-Public Use
  Company Number: CA-ROCHE-1835644

PATIENT
  Age: 23 Year
  Sex: Female

DRUGS (10)
  1. ACETYLSALICYLIC ACID [Concomitant]
     Active Substance: ASPIRIN
  2. LOSEC [Concomitant]
     Active Substance: OMEPRAZOLE
  3. ACTEMRA [Suspect]
     Active Substance: TOCILIZUMAB
     Indication: TAKAYASU^S ARTERITIS
     Route: 042
     Dates: start: 20150520, end: 20160726
  4. CITALOPRAM [Concomitant]
     Active Substance: CITALOPRAM HYDROBROMIDE
  5. PREDNISONE. [Concomitant]
     Active Substance: PREDNISONE
  6. ALEXAN [Concomitant]
     Active Substance: SPIRONOLACTONE
  7. IMURAN [Concomitant]
     Active Substance: AZATHIOPRINE
  8. WARFARIN [Concomitant]
     Active Substance: WARFARIN
  9. ENALAPRIL [Concomitant]
     Active Substance: ENALAPRIL
  10. VITAMIN C [Concomitant]
     Active Substance: ASCORBIC ACID

REACTIONS (3)
  - Drug effect incomplete [Unknown]
  - Carditis [Unknown]
  - Takayasu^s arteritis [Recovering/Resolving]

NARRATIVE: CASE EVENT DATE: 20160818
